FAERS Safety Report 9708637 (Version 1)
Quarter: 2013Q4

REPORT INFORMATION
  Report Type: Spontaneous
  Country: FR (occurrence: FR)
  Receive Date: 20131125
  Receipt Date: 20131125
  Transmission Date: 20140711
  Serious: Yes (Hospitalization)
  Sender: FDA-Public Use
  Company Number: FR-BAYER-2013-141666

PATIENT
  Age: 26 Year
  Sex: Female

DRUGS (4)
  1. IZILOX [Suspect]
     Dosage: 400 MG, QD
     Route: 048
     Dates: start: 20130524, end: 20131015
  2. ZYVOXID [Suspect]
     Dosage: 600 MG, QD
     Route: 048
     Dates: start: 20130524, end: 20131015
  3. PIRILENE [Concomitant]
     Indication: PULMONARY TUBERCULOSIS
     Dosage: 500 MG, QD
  4. NICOBION [Concomitant]
     Indication: PULMONARY TUBERCULOSIS

REACTIONS (1)
  - Polyneuropathy [Recovering/Resolving]
